FAERS Safety Report 21334283 (Version 1)
Quarter: 2022Q3

REPORT INFORMATION
  Report Type: Spontaneous
  Country: US (occurrence: US)
  Receive Date: 20220914
  Receipt Date: 20220914
  Transmission Date: 20221027
  Serious: Yes (Death)
  Sender: FDA-Public Use
  Company Number: US-Fresenius Medical Care Renal Therapies Group-FMC-2209-001403

PATIENT
  Age: 90 Year
  Sex: Male
  Weight: 70 kg

DRUGS (3)
  1. DELFLEX WITH DEXTROSE 1.5% LOW MAGNESIUM LOW CALCIUM [Suspect]
     Active Substance: CALCIUM CHLORIDE\DEXTROSE\MAGNESIUM CHLORIDE\SODIUM CHLORIDE\SODIUM LACTATE
     Indication: End stage renal disease
     Dosage: CA = 2.5 MEQ/L, MG 0.5 MEQ/L, EXCHANGES = 6, FILL VOLUME = 2000 ML, DWELL TIME = 1.5 HOURS, LAST FIL
     Route: 033
  2. DELFLEX WITH DEXTROSE 2.5% LOW MAGNESIUM LOW CALCIUM [Suspect]
     Active Substance: CALCIUM CHLORIDE\DEXTROSE\MAGNESIUM CHLORIDE\SODIUM CHLORIDE\SODIUM LACTATE
     Indication: End stage renal disease
     Dosage: CA = 2.5 MEQ/L, MG 0.5 MEQ/L, EXCHANGES = 6, FILL VOLUME = 2000 ML, DWELL TIME = 1.5 HOURS, LAST FIL
     Route: 033
  3. DELFLEX WITH DEXTROSE 4.25% LOW MAGNESIUM LOW CALCIUM [Suspect]
     Active Substance: CALCIUM CHLORIDE\DEXTROSE\MAGNESIUM CHLORIDE\SODIUM CHLORIDE\SODIUM LACTATE
     Indication: End stage renal disease
     Dosage: CA = 2.5 MEQ/L, MG 0.5 MEQ/L, EXCHANGES = 6, FILL VOLUME = 2000 ML, DWELL TIME = 1.5 HOURS, LAST FIL
     Route: 033

REACTIONS (1)
  - Cardiac arrest [Fatal]
